FAERS Safety Report 9995253 (Version 1)
Quarter: 2014Q1

REPORT INFORMATION
  Report Type: Spontaneous
  Country: US (occurrence: None)
  Receive Date: 20140307
  Receipt Date: 20140307
  Transmission Date: 20141002
  Serious: Yes (Other)
  Sender: FDA-Public Use
  Company Number: None

PATIENT
  Age: 66 Year
  Sex: Female

DRUGS (15)
  1. CHOLESTYRAMINE [Suspect]
     Dosage: 1 SCOOP PER 2 OZ LIQUID
     Route: 048
     Dates: start: 20140212, end: 20140212
  2. ATENOLOL [Concomitant]
  3. LOSARTAN [Concomitant]
  4. POTASSIUM [Concomitant]
  5. MELOXICAM [Concomitant]
  6. HYDROCHLOROTHIAZIDE [Concomitant]
  7. PROMETHAZINE [Concomitant]
  8. SLEEP AID [Concomitant]
  9. CALCIUM [Concomitant]
  10. FISH OIL [Concomitant]
  11. MATURE MULTI VITAMINS + MINERALS [Concomitant]
  12. C [Concomitant]
  13. DIGESTIVE PROBIOTIC [Concomitant]
  14. OPTIFIBER [Concomitant]
  15. CORICIDIN HBP [Concomitant]

REACTIONS (7)
  - Influenza [None]
  - Nausea [None]
  - Vertigo [None]
  - Insomnia [None]
  - Retching [None]
  - Aphagia [None]
  - Asthenia [None]
